FAERS Safety Report 23877538 (Version 1)
Quarter: 2024Q2

REPORT INFORMATION
  Report Type: Spontaneous
  Country: NL (occurrence: NL)
  Receive Date: 20240521
  Receipt Date: 20240521
  Transmission Date: 20240716
  Serious: Yes (Death, Hospitalization, Other)
  Sender: FDA-Public Use
  Company Number: NL-RISINGPHARMA-NL-2024RISLIT00139

PATIENT
  Age: 55 Year
  Sex: Male

DRUGS (3)
  1. CAPECITABINE [Suspect]
     Active Substance: CAPECITABINE
     Indication: Gastric cancer
     Dosage: REDUCED TO 50%
     Route: 065
  2. OXALIPLATIN [Suspect]
     Active Substance: OXALIPLATIN
     Indication: Gastric cancer
     Route: 065
  3. TRASTUZUMAB [Suspect]
     Active Substance: TRASTUZUMAB
     Indication: Gastric cancer
     Route: 065

REACTIONS (8)
  - Leukoencephalopathy [Fatal]
  - Neutropenic colitis [Recovered/Resolved]
  - Renal vein thrombosis [Unknown]
  - Mucosal inflammation [Recovered/Resolved]
  - Abdominal pain [Unknown]
  - Pancytopenia [Recovered/Resolved]
  - Toxicity to various agents [Fatal]
  - Product use in unapproved indication [Unknown]
